FAERS Safety Report 8836532 (Version 1)
Quarter: 2012Q4

REPORT INFORMATION
  Report Type: Spontaneous
  Country: None (occurrence: None)
  Receive Date: 20121009
  Receipt Date: 20121009
  Transmission Date: 20130627
  Serious: Yes (Life-Threatening, Hospitalization, Disabling, Other)
  Sender: FDA-Public Use
  Company Number: AUR-APL-2012-04304

PATIENT
  Sex: Female

DRUGS (10)
  1. RISPERIDONE [Suspect]
     Indication: DRUG USE FOR UNKNOWN INDICATION
  2. QUETIAPINE [Suspect]
     Indication: DRUG USE FOR UNKNOWN INDICATION
  3. TAVOR (LORAZEPAM) [Suspect]
     Indication: DRUG USE FOR UNKNOWN INDICATION
  4. HALDOL [Suspect]
     Indication: DRUG USE FOR UNKNOWN INDICATION
  5. CARBAMAZEPINE [Suspect]
     Indication: DRUG USE FOR UNKNOWN INDICATION
  6. FLUPENTIXOL [Suspect]
     Indication: DRUG USE FOR UNKNOWN INDICATION
  7. ABILIFY [Suspect]
     Indication: DRUG USE FOR UNKNOWN INDICATION
  8. ZOPICLONE [Suspect]
     Indication: DRUG USE FOR UNKNOWN INDICATION
  9. ZYPREXA [Suspect]
     Indication: DRUG USE FOR UNKNOWN INDICATION
  10. OPIPRAMOL [Suspect]
     Indication: DRUG USE FOR UNKNOWN INDICATION

REACTIONS (42)
  - Coma [None]
  - Tooth fracture [None]
  - Muscle spasms [None]
  - Amenorrhoea [None]
  - Abdominal pain upper [None]
  - Nausea [None]
  - Renal disorder [None]
  - Asthenia [None]
  - Alopecia [None]
  - Sleep disorder [None]
  - Pruritus [None]
  - Arthralgia [None]
  - Visual impairment [None]
  - Blood glucose decreased [None]
  - Gastrooesophageal reflux disease [None]
  - Neuralgia [None]
  - Body temperature increased [None]
  - Inflammation [None]
  - Pain [None]
  - Liver function test abnormal [None]
  - White blood cell count increased [None]
  - Drug hypersensitivity [None]
  - Tachycardia [None]
  - Tooth loss [None]
  - Coordination abnormal [None]
  - Gastrointestinal disorder [None]
  - Incontinence [None]
  - Pleurothotonus [None]
  - Eye pain [None]
  - Mutism [None]
  - Memory impairment [None]
  - Vomiting [None]
  - Feeling cold [None]
  - Arthropathy [None]
  - Spinal disorder [None]
  - Renal pain [None]
  - Burning sensation [None]
  - Gastritis [None]
  - Gastric ulcer [None]
  - Drug intolerance [None]
  - Delusion [None]
  - Rash [None]
